FAERS Safety Report 10965838 (Version 1)
Quarter: 2015Q1

REPORT INFORMATION
  Report Type: Spontaneous
  Country: JP (occurrence: JP)
  Receive Date: 20150330
  Receipt Date: 20150330
  Transmission Date: 20150721
  Serious: Yes (Death)
  Sender: FDA-Public Use
  Company Number: JP-UCBSA-2015010006

PATIENT
  Age: 63 Year
  Sex: Male

DRUGS (1)
  1. NEUPRO [Suspect]
     Active Substance: ROTIGOTINE
     Indication: RESTLESS LEGS SYNDROME
     Dosage: UNK
     Route: 062

REACTIONS (4)
  - Hypotension [Fatal]
  - Dyskinesia [Unknown]
  - Chronic kidney disease [Fatal]
  - Cardiac failure chronic [Fatal]
